FAERS Safety Report 12937339 (Version 1)
Quarter: 2016Q4

REPORT INFORMATION
  Report Type: Report from Study
  Country: US (occurrence: US)
  Receive Date: 20161114
  Receipt Date: 20161114
  Transmission Date: 20170207
  Serious: Yes (Hospitalization)
  Sender: FDA-Public Use
  Company Number: US-JNJFOC-20161024178

PATIENT
  Age: 73 Year
  Sex: Male

DRUGS (1)
  1. IMBRUVICA [Suspect]
     Active Substance: IBRUTINIB
     Indication: CHRONIC LYMPHOCYTIC LEUKAEMIA
     Route: 048
     Dates: start: 20161014

REACTIONS (5)
  - Blood potassium abnormal [Unknown]
  - Diarrhoea [Recovering/Resolving]
  - White blood cell count abnormal [Unknown]
  - Oroticaciduria [Unknown]
  - Rash [Unknown]

NARRATIVE: CASE EVENT DATE: 201610
